FAERS Safety Report 20798961 (Version 1)
Quarter: 2022Q2

REPORT INFORMATION
  Report Type: Spontaneous
  Country: US (occurrence: US)
  Receive Date: 20220507
  Receipt Date: 20220507
  Transmission Date: 20220721
  Serious: No
  Sender: FDA-Public Use
  Company Number: US-CELGENE-USA-20220107001

PATIENT
  Age: 83 Year
  Sex: Female
  Weight: 63.5 kg

DRUGS (3)
  1. REVLIMID [Suspect]
     Active Substance: LENALIDOMIDE
     Indication: Plasma cell myeloma
     Dosage: 25 MILLIGRAM
     Route: 048
     Dates: start: 201301
  2. REVLIMID [Suspect]
     Active Substance: LENALIDOMIDE
     Dosage: 10 MILLIGRAM
     Route: 048
     Dates: start: 20130130
  3. KEFLEX [Concomitant]
     Active Substance: CEPHALEXIN
     Indication: Product used for unknown indication
     Dosage: STARTED KEFLEX FOR 7 DAYS
     Route: 065

REACTIONS (4)
  - White blood cell count decreased [Unknown]
  - Urinary incontinence [Unknown]
  - Urinary tract infection [Unknown]
  - Off label use [Unknown]

NARRATIVE: CASE EVENT DATE: 20220125
